FAERS Safety Report 23383008 (Version 1)
Quarter: 2024Q1

REPORT INFORMATION
  Report Type: Spontaneous
  Country: US (occurrence: None)
  Receive Date: 20240108
  Receipt Date: 20240108
  Transmission Date: 20240410
  Serious: Yes (Disabling)
  Sender: FDA-Public Use
  Company Number: None

PATIENT
  Age: 77 Year
  Sex: Female
  Weight: 106.2 kg

DRUGS (3)
  1. TIMOLOL [Suspect]
     Active Substance: TIMOLOL
     Indication: Glaucoma
     Route: 047
     Dates: start: 20220901, end: 20230101
  2. PREDNISONE [Concomitant]
     Active Substance: PREDNISONE
     Dates: start: 20221001, end: 20221114
  3. antibiotic eye drop [Concomitant]
     Dates: start: 20221001, end: 20221114

REACTIONS (6)
  - Fatigue [None]
  - Brain fog [None]
  - Pain [None]
  - Dysstasia [None]
  - Impaired work ability [None]
  - Tinnitus [None]

NARRATIVE: CASE EVENT DATE: 20220901
